FAERS Safety Report 5159104-0 (Version None)
Quarter: 2006Q4

REPORT INFORMATION
  Report Type: 
  Country: None (occurrence: None)
  Receive Date: 20061117
  Receipt Date: 20061105
  Transmission Date: 20070319
  Serious: Yes (Hospitalization)
  Sender: FDA-Public Use
  Company Number: 2006PV022637

PATIENT
  Age: 67 Year
  Sex: Male
  Weight: 115.6672 kg

DRUGS (24)
  1. BYETTA [Suspect]
     Indication: DIABETES MELLITUS NON-INSULIN-DEPENDENT
     Dosage: 10 MCG; BID; SC, SEE IMAGE
     Route: 058
     Dates: start: 20060905, end: 20060924
  2. BYETTA [Suspect]
     Indication: DIABETES MELLITUS NON-INSULIN-DEPENDENT
     Dosage: 10 MCG; BID; SC, SEE IMAGE
     Route: 058
     Dates: start: 20060925
  3. LANTUS [Concomitant]
  4. METFORMIN HCL [Concomitant]
  5. PREDNISONE TAB [Concomitant]
  6. PROTONIX [Concomitant]
  7. ACCOLATE [Concomitant]
  8. SPIRONOLACTONE [Concomitant]
  9. AVAPRO [Concomitant]
  10. LASIX [Concomitant]
  11. VYTORIN [Concomitant]
  12. GABAPENTIN [Concomitant]
  13. CARDIZEM [Concomitant]
  14. ZIAC HCT [Concomitant]
  15. SYNTHROID [Concomitant]
  16. XANAX [Concomitant]
  17. SAW PALMETTO [Concomitant]
  18. VITAMIN E [Concomitant]
  19. ASCORBIC ACID [Concomitant]
  20. ASPIRIN [Concomitant]
  21. MULTIPLE VITAMIN [Concomitant]
  22. MORPHINE [Concomitant]
  23. LORTAB [Concomitant]
  24. THEOPHYLLINE [Concomitant]

REACTIONS (6)
  - CHRONIC OBSTRUCTIVE PULMONARY DISEASE [None]
  - LETHARGY [None]
  - PNEUMONIA [None]
  - RESPIRATORY FAILURE [None]
  - SENSATION OF HEAVINESS [None]
  - WEIGHT FLUCTUATION [None]
